FAERS Safety Report 7556553-8 (Version None)
Quarter: 2011Q2

REPORT INFORMATION
  Report Type: 
  Country: None (occurrence: None)
  Receive Date: 20110620
  Receipt Date: 20110608
  Transmission Date: 20111010
  Serious: Yes (Hospitalization)
  Sender: FDA-Public Use
  Company Number: DE-TYCO HEALTHCARE/MALLINCKRODT-T201100741

PATIENT
  Sex: Female
  Weight: 85 kg

DRUGS (18)
  1. EXALGO [Suspect]
     Dosage: 8 MG + 8 MG + 8 MG, BID
  2. RABEPRAZOLE SODIUM [Concomitant]
     Dosage: 1 UNK, UNK
  3. FEBUXOSTAT [Concomitant]
     Dosage: 80 MG
  4. ASPIRIN [Concomitant]
     Dosage: 1-0-0
  5. BUSP [Concomitant]
     Dosage: IN 1 AS NECESSARY
     Route: 065
  6. ZOPICLONE [Concomitant]
     Dosage: 7.5 MG, 0-0-2
  7. TELMISARTAN [Concomitant]
     Dosage: 0.5 UNK, UNK
  8. FUROSEMID                          /00032601/ [Concomitant]
     Dosage: 80 MG-40 MG
  9. BACLOFEN [Concomitant]
     Dosage: 25 MG, QD
     Route: 065
  10. MOVICOL                            /01053601/ [Concomitant]
     Dosage: 1-1-1
  11. MAGNESIUM [Concomitant]
     Dosage: 200 MG, 1-0-1
  12. ANTIBIOTICS [Concomitant]
     Dosage: UNK
  13. SORMODREN [Concomitant]
     Dosage: 1-0-1
  14. WOBENZYM                           /00598501/ [Concomitant]
     Dosage: 1-1-1
  15. LEXOTANIL [Concomitant]
     Dosage: 6 MG, 1-0-1
  16. EXALGO [Suspect]
     Indication: PAIN
     Dosage: 16 MG + 8 MG , BID
     Route: 048
  17. ACC LONG [Concomitant]
     Dosage: 1-0-0
  18. DOXEPIN [Concomitant]
     Dosage: 25 MG, QD
     Route: 065

REACTIONS (6)
  - DISORIENTATION [None]
  - ANKLE FRACTURE [None]
  - CONFUSIONAL STATE [None]
  - FALL [None]
  - DRUG LEVEL INCREASED [None]
  - OVERDOSE [None]
